FAERS Safety Report 7792224-0 (Version None)
Quarter: 2011Q4

REPORT INFORMATION
  Report Type: 
  Country: None (occurrence: None)
  Receive Date: 20111003
  Receipt Date: 20111003
  Transmission Date: 20120403
  Serious: Yes (Other)
  Sender: FDA-Public Use
  Company Number: None

PATIENT
  Age: 29 Year
  Sex: Female
  Weight: 78 kg

DRUGS (1)
  1. ALDARA [Suspect]
     Indication: ANOGENITAL WARTS
     Dosage: 1 APPLICATION SACHET
     Route: 067

REACTIONS (11)
  - BREAST MASS [None]
  - LOSS OF EMPLOYMENT [None]
  - HYPOTENSION [None]
  - DYSURIA [None]
  - BREAST SWELLING [None]
  - ACTIVITIES OF DAILY LIVING IMPAIRED [None]
  - FATIGUE [None]
  - MALAISE [None]
  - MYALGIA [None]
  - HEADACHE [None]
  - INCORRECT DOSE ADMINISTERED [None]
